FAERS Safety Report 5899377-X (Version None)
Quarter: 2008Q3

REPORT INFORMATION
  Report Type: 
  Country: None (occurrence: None)
  Receive Date: 20080924
  Receipt Date: 20080915
  Transmission Date: 20090109
  Serious: No
  Sender: FDA-Public Use
  Company Number: US024619

PATIENT
  Sex: Male

DRUGS (3)
  1. FENTORA [Suspect]
     Indication: CANCER PAIN
  2. FENTANYL [Concomitant]
  3. OXYCODONE HCL [Concomitant]

REACTIONS (1)
  - CIRCUMSTANCE OR INFORMATION CAPABLE OF LEADING TO MEDICATION ERROR [None]
